FAERS Safety Report 6658745-9 (Version None)
Quarter: 2010Q1

REPORT INFORMATION
  Report Type: 
  Country: None (occurrence: None)
  Receive Date: 20100330
  Receipt Date: 20100323
  Transmission Date: 20100710
  Serious: Yes (Hospitalization, Other)
  Sender: FDA-Public Use
  Company Number: PHHO2008DE11245

PATIENT
  Sex: Male
  Weight: 57 kg

DRUGS (8)
  1. STI571/CGP57148B T35717+CAPS [Suspect]
     Indication: PROSTATE CANCER METASTATIC
     Dosage: UNK
     Route: 048
     Dates: start: 20080909, end: 20080916
  2. ACTOS [Concomitant]
  3. CASODEX [Concomitant]
  4. ATMADISC [Concomitant]
     Indication: CHRONIC OBSTRUCTIVE PULMONARY DISEASE
  5. GODAMED [Concomitant]
     Indication: PROPHYLAXIS
  6. NOVODIGAL [Concomitant]
     Indication: ARRHYTHMIA
     Dosage: UNK
  7. PANTOPRAZOLE SODIUM [Concomitant]
     Indication: NAUSEA
  8. DURAGESIC-100 [Concomitant]
     Indication: PAIN

REACTIONS (9)
  - C-REACTIVE PROTEIN INCREASED [None]
  - DEHYDRATION [None]
  - ELECTROLYTE IMBALANCE [None]
  - GENERAL PHYSICAL HEALTH DETERIORATION [None]
  - LYMPHOCYTE COUNT DECREASED [None]
  - MALIGNANT NEOPLASM PROGRESSION [None]
  - NAUSEA [None]
  - VISUAL ACUITY REDUCED [None]
  - VOMITING [None]
